FAERS Safety Report 15863922 (Version 1)
Quarter: 2019Q1

REPORT INFORMATION
  Report Type: Report from Study
  Country: US (occurrence: US)
  Receive Date: 20190124
  Receipt Date: 20190124
  Transmission Date: 20190417
  Serious: Yes (Hospitalization)
  Sender: FDA-Public Use
  Company Number: US-BAYER-2018-234178

PATIENT
  Age: 46 Year
  Sex: Female

DRUGS (1)
  1. STIVARGA [Suspect]
     Active Substance: REGORAFENIB
     Indication: HEPATIC CANCER
     Dosage: 40 MG, QD
     Route: 048
     Dates: start: 20181128

REACTIONS (4)
  - Off label use [None]
  - Sepsis [None]
  - Product dose omission [Unknown]
  - Decreased appetite [Unknown]
